FAERS Safety Report 8790852 (Version 1)
Quarter: 2012Q4

REPORT INFORMATION
  Report Type: Spontaneous
  Country: FR (occurrence: None)
  Receive Date: 20120910
  Receipt Date: 20120910
  Transmission Date: 20130627
  Serious: Yes (Hospitalization)
  Sender: FDA-Public Use
  Company Number: FR-1193954

PATIENT
  Age: 81 Year
  Sex: Female

DRUGS (7)
  1. IOPIDINE [Suspect]
     Dosage: (1 DF Total Ophthalmic)
     Route: 047
     Dates: start: 20111121, end: 20111121
  2. PROTELOS [Suspect]
     Route: 048
     Dates: end: 20111122
  3. TAVANIC [Suspect]
     Route: 048
     Dates: start: 20111120, end: 20111121
  4. BETADINE [Suspect]
     Route: 047
     Dates: start: 20111121, end: 20111121
  5. STERDEX [Suspect]
     Dosage: (1 DF Total Ophthalmic)
     Route: 047
     Dates: start: 20111121, end: 20111121
  6. HYPNOVEL [Suspect]
     Route: 047
     Dates: start: 20111121, end: 20111121
  7. VITAMIN D [Concomitant]

REACTIONS (3)
  - Drug reaction with eosinophilia and systemic symptoms [None]
  - Thrombophlebitis [None]
  - Anaemia [None]
